FAERS Safety Report 9250826 (Version 1)
Quarter: 2013Q1

REPORT INFORMATION
  Report Type: Spontaneous
  Country: US (occurrence: None)
  Receive Date: 20130305
  Receipt Date: 20130305
  Transmission Date: 20140127
  Serious: Yes (Other)
  Sender: FDA-Public Use
  Company Number: 163-21880-12090336

PATIENT
  Age: 50 Year
  Sex: Male

DRUGS (4)
  1. REVLIMID (LENALIDOMIDE) [Suspect]
     Indication: PLASMA CELL MYELOMA
     Dates: start: 20120807
  2. METFORMIN HCL (METFORMIN HYDROCHLORIDE) [Concomitant]
  3. BUMETANIDE (BUMETANIDE) [Concomitant]
  4. ZOMETA (ZOLEDRONIC ACID) [Concomitant]

REACTIONS (3)
  - Dry skin [None]
  - Local swelling [None]
  - Renal impairment [None]
